FAERS Safety Report 12936159 (Version 1)
Quarter: 2016Q4

REPORT INFORMATION
  Report Type: Spontaneous
  Country: US (occurrence: US)
  Receive Date: 20161111
  Receipt Date: 20161111
  Transmission Date: 20170207
  Serious: Yes (Disabling)
  Sender: FDA-Public Use
  Company Number: None

PATIENT
  Age: 58 Year
  Sex: Female

DRUGS (1)
  1. AFTERBITE WITH ANTIHISTIMINE [Suspect]
     Active Substance: DIPHENHYDRAMINE HYDROCHLORIDE
     Indication: ARTHROPOD BITE
     Route: 061
     Dates: start: 20150630, end: 20150930

REACTIONS (3)
  - Application site reaction [None]
  - Application site erythema [None]
  - Urticaria [None]

NARRATIVE: CASE EVENT DATE: 20150630
